FAERS Safety Report 21688332 (Version 1)
Quarter: 2022Q4

REPORT INFORMATION
  Report Type: Spontaneous
  Country: BG (occurrence: BG)
  Receive Date: 20221206
  Receipt Date: 20221206
  Transmission Date: 20230113
  Serious: Yes (Other)
  Sender: FDA-Public Use
  Company Number: BG-ASTELLAS-2022US031104

PATIENT
  Age: 65 Year
  Sex: Male

DRUGS (5)
  1. DENOSUMAB [Suspect]
     Active Substance: DENOSUMAB
     Indication: Product used for unknown indication
     Dosage: 120 MILLIGRAM, QMO
     Route: 058
  2. XTANDI [Suspect]
     Active Substance: ENZALUTAMIDE
     Indication: Prostate cancer
     Dosage: 160 MILLIGRAM, 28 DAYS
     Route: 065
     Dates: start: 202109
  3. ZOLEDRONIC ACID [Suspect]
     Active Substance: ZOLEDRONIC ACID
     Indication: Product used for unknown indication
     Dosage: 4 MILLIGRAM, EVERY 28 DAYS
     Route: 040
  4. ELIGARD [Suspect]
     Active Substance: LEUPROLIDE ACETATE
     Indication: Prostate cancer
     Dosage: 45 MILLIGRAM,  EVERY 6 MONTHS (HORMONAL THERAPY WITH ELIGARD )
     Route: 065
     Dates: start: 201809
  5. BICALUTAMIDE [Suspect]
     Active Substance: BICALUTAMIDE
     Indication: Product used for unknown indication
     Dosage: 50 MILLIGRAM, QD
     Route: 065
     Dates: start: 202001

REACTIONS (14)
  - Pleural effusion [Unknown]
  - Prostate cancer [Unknown]
  - Cardiac failure chronic [Recovering/Resolving]
  - Osteonecrosis of jaw [Unknown]
  - Blood pressure fluctuation [Recovering/Resolving]
  - Asthenia [Unknown]
  - Prostatic specific antigen increased [Unknown]
  - Musculoskeletal stiffness [Unknown]
  - Off label use [Unknown]
  - Arthralgia [Unknown]
  - Insomnia [Unknown]
  - Blood glucose increased [Unknown]
  - Headache [Unknown]
  - Bone pain [Unknown]

NARRATIVE: CASE EVENT DATE: 20181201
